FAERS Safety Report 12924236 (Version 1)
Quarter: 2016Q4

REPORT INFORMATION
  Report Type: Report from Study
  Country: US (occurrence: US)
  Receive Date: 20161108
  Receipt Date: 20161108
  Transmission Date: 20170207
  Serious: Yes (Hospitalization)
  Sender: FDA-Public Use
  Company Number: US-JNJFOC-20161105877

PATIENT
  Age: 75 Year
  Sex: Female
  Weight: 102 kg

DRUGS (1)
  1. IBRUTINIB [Suspect]
     Active Substance: IBRUTINIB
     Indication: CHRONIC LYMPHOCYTIC LEUKAEMIA
     Route: 048
     Dates: start: 20160115, end: 20161005

REACTIONS (4)
  - Seizure [Unknown]
  - Confusional state [Unknown]
  - Muscular weakness [Unknown]
  - Bacteraemia [Unknown]

NARRATIVE: CASE EVENT DATE: 20161002
